FAERS Safety Report 9558975 (Version 2)
Quarter: 2013Q4

REPORT INFORMATION
  Report Type: Spontaneous
  Country: BR (occurrence: BR)
  Receive Date: 20130927
  Receipt Date: 20131030
  Transmission Date: 20140711
  Serious: Yes (Hospitalization)
  Sender: FDA-Public Use
  Company Number: BR-ASTRAZENECA-2013SE71075

PATIENT
  Age: 62 Year
  Sex: Female
  Weight: 130 kg

DRUGS (2)
  1. SYMBICORT TURBUHALER [Suspect]
     Indication: FATIGUE
     Dosage: TWO TIMES A DAY
     Route: 055
     Dates: start: 201308, end: 2013
  2. SYMBICORT TURBUHALER [Suspect]
     Indication: HYPERSENSITIVITY
     Dosage: TWO TIMES A DAY
     Route: 055
     Dates: start: 201308, end: 2013

REACTIONS (2)
  - Proctalgia [Recovering/Resolving]
  - Off label use [Recovered/Resolved]
